FAERS Safety Report 12380367 (Version 1)
Quarter: 2016Q2

REPORT INFORMATION
  Report Type: Spontaneous
  Country: US (occurrence: None)
  Receive Date: 20160517
  Receipt Date: 20160517
  Transmission Date: 20160815
  Serious: Yes (Disabling)
  Sender: FDA-Public Use
  Company Number: None

PATIENT
  Age: 57 Year
  Sex: Female
  Weight: 53.07 kg

DRUGS (5)
  1. VITAMIN D [Concomitant]
     Active Substance: CHOLECALCIFEROL
  2. IRON SUPPLEMENT [Concomitant]
     Active Substance: IRON
  3. ALENDRONATE SODIUM. [Suspect]
     Active Substance: ALENDRONATE SODIUM
     Indication: OSTEOPOROSIS
     Route: 048
     Dates: start: 20151109, end: 20160425
  4. CITRACAL [Concomitant]
     Active Substance: CALCIUM CITRATE
  5. VITAMIN B [Concomitant]
     Active Substance: VITAMIN B

REACTIONS (4)
  - Abdominal distension [None]
  - Flatulence [None]
  - Dupuytren^s contracture [None]
  - Abdominal pain upper [None]
